FAERS Safety Report 13236620 (Version 2)
Quarter: 2019Q4

REPORT INFORMATION
  Report Type: Spontaneous
  Country: US (occurrence: US)
  Receive Date: 20170215
  Receipt Date: 20191029
  Transmission Date: 20200122
  Serious: Yes (Other)
  Sender: FDA-Public Use
  Company Number: US-ELI_LILLY_AND_COMPANY-US201702003878

PATIENT
  Sex: Male

DRUGS (6)
  1. CIALIS [Suspect]
     Active Substance: TADALAFIL
     Dosage: 20 MG, UNKNOWN(1/2 TABLET PER USE)
     Route: 065
     Dates: start: 20130325, end: 20130406
  2. VIAGRA [Suspect]
     Active Substance: SILDENAFIL CITRATE
     Indication: ERECTILE DYSFUNCTION
     Dosage: 50 MG, WEEKLY (1/W)
     Route: 065
     Dates: start: 20080815, end: 20080914
  3. CIALIS [Suspect]
     Active Substance: TADALAFIL
     Dosage: 20 MG, UNKNOWN(1/2 TABLET PER USE)
     Route: 065
     Dates: start: 20130407, end: 20160302
  4. CIALIS [Suspect]
     Active Substance: TADALAFIL
     Indication: ERECTILE DYSFUNCTION
     Dosage: 20 MG, UNKNOWN(1/2 TABLET PER USE)
     Route: 065
     Dates: start: 20080815, end: 20081022
  5. VIAGRA [Suspect]
     Active Substance: SILDENAFIL CITRATE
     Dosage: 100 MG, WEEKLY (1/W)
     Route: 065
     Dates: start: 20120811, end: 20130321
  6. VIAGRA [Suspect]
     Active Substance: SILDENAFIL CITRATE
     Dosage: 50 MG, WEEKLY (1/W)
     Route: 065
     Dates: start: 20091204, end: 20100103

REACTIONS (3)
  - Actinic keratosis [Recovered/Resolved]
  - Malignant melanoma stage II [Unknown]
  - Basal cell carcinoma [Recovered/Resolved]

NARRATIVE: CASE EVENT DATE: 20120227
